FAERS Safety Report 8091484-9 (Version None)
Quarter: 2012Q1

REPORT INFORMATION
  Report Type: 
  Country: None (occurrence: None)
  Receive Date: 20120129
  Receipt Date: 20111106
  Transmission Date: 20120608
  Serious: No
  Sender: FDA-Public Use
  Company Number: US-ABBOTT-11P-163-0871616-00

PATIENT
  Age: 5 Year
  Sex: Female

DRUGS (2)
  1. HUMIRA [Suspect]
     Indication: UVEITIS
     Dates: start: 20110901
  2. STEROIDAL EYE DROPS [Concomitant]
     Indication: PRODUCT USED FOR UNKNOWN INDICATION

REACTIONS (1)
  - INJECTION SITE ERYTHEMA [None]
